FAERS Safety Report 13829576 (Version 1)
Quarter: 2017Q3

REPORT INFORMATION
  Report Type: Spontaneous
  Country: TW (occurrence: TW)
  Receive Date: 20170803
  Receipt Date: 20170803
  Transmission Date: 20171127
  Serious: Yes (Other)
  Sender: FDA-Public Use
  Company Number: TW-AMGEN-TWNSP2017116414

PATIENT
  Age: 77 Year
  Sex: Female

DRUGS (1)
  1. ENBREL [Suspect]
     Active Substance: ETANERCEPT
     Indication: RHEUMATOID ARTHRITIS
     Dosage: 25 MG, CYCLIC(EVERY 6 DAYS)
     Route: 058
     Dates: start: 201104

REACTIONS (3)
  - Joint swelling [Recovering/Resolving]
  - Joint abscess [Recovering/Resolving]
  - Complication associated with device [Recovering/Resolving]

NARRATIVE: CASE EVENT DATE: 20170721
